FAERS Safety Report 14681292 (Version 1)
Quarter: 2018Q1

REPORT INFORMATION
  Report Type: Spontaneous
  Country: US (occurrence: US)
  Receive Date: 20180326
  Receipt Date: 20180326
  Transmission Date: 20180509
  Serious: No
  Sender: FDA-Public Use
  Company Number: US-PFIZER INC-2016522244

PATIENT
  Age: 62 Year
  Sex: Female

DRUGS (2)
  1. EXEMESTANE. [Concomitant]
     Active Substance: EXEMESTANE
     Indication: AROMATASE INHIBITION THERAPY
     Dosage: UNK
  2. IBRANCE [Suspect]
     Active Substance: PALBOCICLIB
     Indication: BREAST CANCER FEMALE
     Dosage: 125 MG, UNK
     Dates: start: 20160913

REACTIONS (2)
  - Malaise [Unknown]
  - Product use in unapproved indication [Unknown]

NARRATIVE: CASE EVENT DATE: 20160913
